FAERS Safety Report 6398146-4 (Version None)
Quarter: 2009Q3

REPORT INFORMATION
  Report Type: 
  Country: None (occurrence: None)
  Receive Date: 20090922
  Receipt Date: 20090909
  Transmission Date: 20100115
  Serious: Yes (Hospitalization)
  Sender: FDA-Public Use
  Company Number: THYM-1000764

PATIENT
  Age: 53 Year
  Sex: Female
  Weight: 52.3 kg

DRUGS (14)
  1. THYMOGLOBULIN [Suspect]
     Indication: MYELODYSPLASTIC SYNDROME
     Dosage: 3.75 MG/KG, QD, INTRAVENOUS
  2. THYMOGLOBULIN [Suspect]
  3. PARACETAMOL (PARACETAMOL) [Concomitant]
  4. DOMPERIDONE (DOMPERIDONE) [Concomitant]
  5. HYDROCORTONE [Concomitant]
  6. PREDNISOLONE ACETATE [Concomitant]
  7. OMEPRAZOLE [Concomitant]
  8. CHLORPHENIRAMINE MALEATE [Concomitant]
  9. ACYCLOVIR [Concomitant]
  10. ITRACONAZOLE [Concomitant]
  11. GENTAMICIN [Concomitant]
  12. PIPERACILLIN SODIUM AND TAZOBACTAM SODIUM [Concomitant]
  13. CALCIUM GLUCONATE [Concomitant]
  14. KALIUM CHLORID (POTASSIUM CHLORIDE) [Concomitant]

REACTIONS (5)
  - BRADYCARDIA [None]
  - ELECTROCARDIOGRAM T WAVE INVERSION [None]
  - HYPOCALCAEMIA [None]
  - HYPOKALAEMIA [None]
  - SERUM SICKNESS [None]
